FAERS Safety Report 11829330 (Version 1)
Quarter: 2015Q4

REPORT INFORMATION
  Report Type: Report from Study
  Country: MX (occurrence: MX)
  Receive Date: 20151211
  Receipt Date: 20151211
  Transmission Date: 20160305
  Serious: Yes (Other)
  Sender: FDA-Public Use
  Company Number: PHHY2015MX162573

PATIENT
  Age: 91 Year
  Sex: Male
  Weight: 60 kg

DRUGS (3)
  1. COMBODART [Concomitant]
     Active Substance: DUTASTERIDE\TAMSULOSIN
     Indication: PROSTATIC DISORDER
     Dosage: 1 DF (DUTASTERIDE 0.5 MG, TAMSULOSIN HYDROCHLORIDE 0.4 MG), QD (3 YEARS AGO)
     Route: 048
  2. EXFORGE [Suspect]
     Active Substance: AMLODIPINE BESYLATE\VALSARTAN
     Dosage: 0.5 DF (VALSARTAN 160 MG AND AMLODIPINE 5 MG,), QD
     Route: 048
     Dates: start: 201504
  3. EXFORGE [Suspect]
     Active Substance: AMLODIPINE BESYLATE\VALSARTAN
     Indication: HYPERTENSION
     Dosage: VALSARTAN 160 MG AND AMLODIPINE 5 MG, QD (3 YEARS AGO)
     Route: 048

REACTIONS (3)
  - Syncope [Recovered/Resolved]
  - Hypotension [Not Recovered/Not Resolved]
  - Off label use [Not Recovered/Not Resolved]

NARRATIVE: CASE EVENT DATE: 201504
